FAERS Safety Report 7705379-0 (Version None)
Quarter: 2011Q3

REPORT INFORMATION
  Report Type: 
  Country: None (occurrence: None)
  Receive Date: 20110824
  Receipt Date: 20110815
  Transmission Date: 20111222
  Serious: Yes (Other)
  Sender: FDA-Public Use
  Company Number: US-JNJFOC-20110807847

PATIENT
  Sex: Male
  Weight: 136.08 kg

DRUGS (2)
  1. RISPERIDONE [Suspect]
     Indication: SCHIZOPHRENIA
     Route: 048
     Dates: start: 19960101
  2. RISPERIDONE [Suspect]
     Indication: ANXIETY
     Route: 048
     Dates: start: 19960101

REACTIONS (4)
  - HYPERTENSION [None]
  - THYROID DISORDER [None]
  - WEIGHT INCREASED [None]
  - TYPE 2 DIABETES MELLITUS [None]
